FAERS Safety Report 4840910-4 (Version None)
Quarter: 2005Q4

REPORT INFORMATION
  Report Type: 
  Country: None (occurrence: None)
  Receive Date: 20051027
  Receipt Date: 20050505
  Transmission Date: 20060501
  Serious: Yes (Other)
  Sender: FDA-Public Use
  Company Number: HQWYE595009MAY05

PATIENT
  Age: 51 Year
  Sex: Female
  Weight: 88.98 kg

DRUGS (11)
  1. PREMARIN [Suspect]
     Indication: HOT FLUSH
     Dosage: 0.625MG TABLET DAILY
     Dates: start: 19890101, end: 20050301
  2. ISOPTIN [Concomitant]
  3. LASIX [Concomitant]
  4. TRICOR [Concomitant]
  5. SYNTHROID [Concomitant]
  6. PROTONIX [Concomitant]
  7. K-DUR 10 [Concomitant]
  8. ALPRAZOLAM [Concomitant]
  9. FIORINAL WITH CODEINE (ACETYLSALICYLIC ACID/BUTALBITAL/CAFFEINE/CODEIN [Concomitant]
  10. MULTIVITAMINS, PLAIN (MULTIVITAMINS, PLAIN) [Concomitant]
  11. CALTRATE 600 (CALCIUM CARBONATE) [Concomitant]

REACTIONS (1)
  - BREAST CANCER [None]
